FAERS Safety Report 6774922-0 (Version None)
Quarter: 2010Q2

REPORT INFORMATION
  Report Type: 
  Country: None (occurrence: None)
  Receive Date: 20100617
  Receipt Date: 20100611
  Transmission Date: 20101027
  Serious: Yes (Hospitalization)
  Sender: FDA-Public Use
  Company Number: FR-AMGEN-KDC410920

PATIENT
  Sex: Female
  Weight: 64 kg

DRUGS (10)
  1. VECTIBIX [Suspect]
     Indication: BREAST CANCER
     Route: 041
     Dates: start: 20091210
  2. TAXOTERE [Suspect]
     Route: 041
     Dates: start: 20100304
  3. DOXYCYCLINE [Concomitant]
     Dates: start: 20100121
  4. BICARBONATE [Concomitant]
     Dates: start: 20091216
  5. CETYLPYRIDINIUM CHLORIDE [Concomitant]
     Dates: start: 20091216
  6. DEXERYL CREME [Concomitant]
     Dates: start: 20091216
  7. MEPROZINE [Concomitant]
     Dates: start: 20100101
  8. CYCLOPHOSPHAMIDE [Concomitant]
     Dates: start: 20091210
  9. EPIRUBICIN [Concomitant]
     Dates: start: 20091210
  10. FLUOROURACIL [Concomitant]
     Dates: start: 20091210

REACTIONS (1)
  - FEBRILE BONE MARROW APLASIA [None]
